FAERS Safety Report 16121933 (Version 1)
Quarter: 2019Q2

REPORT INFORMATION
  Report Type: Spontaneous
  Country: US (occurrence: US)
  Receive Date: 20190326
  Receipt Date: 20190326
  Transmission Date: 20190711
  Serious: Yes (Hospitalization)
  Sender: FDA-Public Use
  Company Number: None

PATIENT
  Age: 72 Year
  Sex: Female

DRUGS (18)
  1. FAMOTIDINE. [Concomitant]
     Active Substance: FAMOTIDINE
  2. BUDESONIDE. [Concomitant]
     Active Substance: BUDESONIDE
  3. PRAVASTATIN. [Concomitant]
     Active Substance: PRAVASTATIN
  4. CEFDINIR. [Concomitant]
     Active Substance: CEFDINIR
  5. SYNTHROID [Concomitant]
     Active Substance: LEVOTHYROXINE SODIUM
  6. FUROSEMIDE. [Concomitant]
     Active Substance: FUROSEMIDE
  7. OMEGA-3 ACIDS [Concomitant]
     Active Substance: OMEGA-3 FATTY ACIDS
  8. POTASSIUM CHLORIDE. [Concomitant]
     Active Substance: POTASSIUM CHLORIDE
  9. PANTOPRAZOLE [Concomitant]
     Active Substance: PANTOPRAZOLE
  10. OSELTAMIVIR [Concomitant]
     Active Substance: OSELTAMIVIR
  11. OFLOXACIN. [Concomitant]
     Active Substance: OFLOXACIN
  12. CLINDAMYCIN. [Concomitant]
     Active Substance: CLINDAMYCIN
  13. ADCIRCA [Suspect]
     Active Substance: TADALAFIL
     Indication: PULMONARY ARTERIAL HYPERTENSION
     Route: 048
     Dates: start: 20190201
  14. PREDNISONE. [Concomitant]
     Active Substance: PREDNISONE
  15. ESCITALOPRAM [Concomitant]
     Active Substance: ESCITALOPRAM OXALATE
  16. CHOLESTYRAM [Concomitant]
     Active Substance: CHOLESTYRAMINE
  17. NIFEDIPINE. [Concomitant]
     Active Substance: NIFEDIPINE
  18. DOXYCYCL HYC [Concomitant]

REACTIONS (1)
  - Influenza [None]

NARRATIVE: CASE EVENT DATE: 20190310
